FAERS Safety Report 21239398 (Version 2)
Quarter: 2022Q3

REPORT INFORMATION
  Report Type: Report from Study
  Country: IT (occurrence: IT)
  Receive Date: 20220822
  Receipt Date: 20220824
  Transmission Date: 20221027
  Serious: Yes (Life-Threatening)
  Sender: FDA-Public Use
  Company Number: IT-PFIZER INC-PV202200045593

PATIENT
  Age: 44 Year
  Sex: Female

DRUGS (3)
  1. GEMTUZUMAB OZOGAMICIN [Suspect]
     Active Substance: GEMTUZUMAB OZOGAMICIN
     Indication: Acute myeloid leukaemia
     Dosage: 5 MG, DAILY, ON DAYS 1, 4,7
     Route: 042
     Dates: start: 20220802, end: 20220808
  2. DAUNORUBICIN HYDROCHLORIDE [Suspect]
     Active Substance: DAUNORUBICIN HYDROCHLORIDE
     Dosage: 114 MG, DAILY, DAYS 1-3
     Route: 042
     Dates: start: 20220802, end: 20220804
  3. CYTARABINE [Suspect]
     Active Substance: CYTARABINE
     Dosage: 380 MG, DAILY, DAYS 1-7
     Route: 042
     Dates: start: 20220802, end: 20220808

REACTIONS (1)
  - Neutropenic colitis [Not Recovered/Not Resolved]

NARRATIVE: CASE EVENT DATE: 20220810
